FAERS Safety Report 14567660 (Version 1)
Quarter: 2018Q1

REPORT INFORMATION
  Report Type: Report from Study
  Country: ZA (occurrence: ZA)
  Receive Date: 20180223
  Receipt Date: 20180223
  Transmission Date: 20180509
  Serious: Yes (Death, Hospitalization, Other)
  Sender: FDA-Public Use
  Company Number: ZA-AMGEN-ZAFSL2018025511

PATIENT
  Sex: Male

DRUGS (1)
  1. ARANESP [Suspect]
     Active Substance: DARBEPOETIN ALFA
     Indication: CHRONIC KIDNEY DISEASE
     Dosage: 20 MUG, QMO
     Route: 058
     Dates: start: 201303, end: 201710

REACTIONS (4)
  - Diabetes mellitus [Unknown]
  - Epilepsy [Unknown]
  - Cerebral infarction [Fatal]
  - Hypertension [Unknown]
